FAERS Safety Report 14625634 (Version 1)
Quarter: 2018Q1

REPORT INFORMATION
  Report Type: Spontaneous
  Country: US (occurrence: US)
  Receive Date: 20180312
  Receipt Date: 20180312
  Transmission Date: 20180509
  Serious: No
  Sender: FDA-Public Use
  Company Number: US-GLAXOSMITHKLINE-US2018040216

PATIENT
  Age: 79 Year
  Sex: Female

DRUGS (1)
  1. ADVAIR DISKUS [Suspect]
     Active Substance: FLUTICASONE PROPIONATE\SALMETEROL XINAFOATE
     Indication: WHEEZING
     Dosage: 1 PUFF(S), QD

REACTIONS (5)
  - Wheezing [Unknown]
  - Drug dose omission [Unknown]
  - Asthma [Unknown]
  - Inability to afford medication [Unknown]
  - Underdose [Unknown]

NARRATIVE: CASE EVENT DATE: 20180304
